FAERS Safety Report 9332511 (Version 1)
Quarter: 2013Q2

REPORT INFORMATION
  Report Type: Spontaneous
  Country: AU (occurrence: None)
  Receive Date: 20130603
  Receipt Date: 20130603
  Transmission Date: 20140414
  Serious: Yes (Hospitalization)
  Sender: FDA-Public Use
  Company Number: ACO_36521_2013

PATIENT
  Sex: Female

DRUGS (4)
  1. FAMPYRA (DALFAMPRIDINE) TABLET, 10MG [Suspect]
     Indication: MULTIPLE SCLEROSIS
     Route: 048
     Dates: start: 20130305, end: 20130326
  2. PREMARIN [Concomitant]
  3. VITAMIN D (ERGOCALCIFEROL) [Concomitant]
  4. GILENYA (FINGOLIMOD HYDROCHLORIDE) [Concomitant]

REACTIONS (5)
  - Psychotic disorder [None]
  - Drug ineffective [None]
  - Hallucination, auditory [None]
  - Delusion [None]
  - Insomnia [None]
